FAERS Safety Report 6248304-4 (Version None)
Quarter: 2009Q2

REPORT INFORMATION
  Report Type: 
  Country: None (occurrence: None)
  Receive Date: 20090629
  Receipt Date: 20090617
  Transmission Date: 20091009
  Serious: Yes (Other)
  Sender: FDA-Public Use
  Company Number: PHEH2007US15651

PATIENT
  Sex: Female

DRUGS (1)
  1. ZOMETA [Suspect]
     Dosage: UNK
     Route: 042

REACTIONS (14)
  - ANAEMIA [None]
  - ANXIETY [None]
  - BACK PAIN [None]
  - DEFORMITY [None]
  - EMOTIONAL DISTRESS [None]
  - GAIT DISTURBANCE [None]
  - HEPATIC NEOPLASM MALIGNANT [None]
  - INFECTION [None]
  - OSTEONECROSIS [None]
  - PAIN [None]
  - PHYSICAL DISABILITY [None]
  - PLEURAL EFFUSION [None]
  - PULMONARY MASS [None]
  - SPINAL COLUMN STENOSIS [None]
